FAERS Safety Report 5872670-2 (Version None)
Quarter: 2008Q3

REPORT INFORMATION
  Report Type: 
  Country: None (occurrence: None)
  Receive Date: 20080905
  Receipt Date: 20080826
  Transmission Date: 20090109
  Serious: Yes (Other)
  Sender: FDA-Public Use
  Company Number: FR-ABBOTT-08P-056-0473141-00

PATIENT
  Sex: Female

DRUGS (1)
  1. ENANTONE  LP 11.25 MG [Suspect]
     Indication: ENDOMETRIOSIS
     Dates: start: 20021228, end: 20030328

REACTIONS (6)
  - ALOPECIA [None]
  - CARDIOVASCULAR DISORDER [None]
  - DEPRESSION [None]
  - LOSS OF LIBIDO [None]
  - SKIN DISORDER [None]
  - THYROIDITIS [None]
